FAERS Safety Report 7222794-2 (Version None)
Quarter: 2011Q1

REPORT INFORMATION
  Report Type: 
  Country: None (occurrence: None)
  Receive Date: 20110106
  Receipt Date: 20110106
  Transmission Date: 20110831
  Serious: Yes (Hospitalization)
  Sender: FDA-Public Use
  Company Number: None

PATIENT
  Age: 81 Year
  Sex: Male
  Weight: 82 kg

DRUGS (19)
  1. ULTRAM [Concomitant]
  2. SSI [Concomitant]
  3. VIT B12 [Concomitant]
  4. KETOROLAC [Concomitant]
  5. TIMOLOL [Concomitant]
  6. LANTUS [Concomitant]
  7. M.V.I. [Concomitant]
  8. NAMENDA [Concomitant]
  9. NAPROXEN [Concomitant]
  10. ASPIRIN [Concomitant]
  11. PREDNISOLONE [Concomitant]
  12. LUMIGAN [Concomitant]
  13. ACETAZOLAMIDE [Suspect]
     Indication: GLAUCOMA
     Dosage: 500MG DAILY PO RECENT
     Route: 048
  14. FERROUS SULFATE TAB [Concomitant]
  15. BRIMONIDINE [Concomitant]
  16. METFORMIN [Suspect]
     Indication: DIABETES MELLITUS
     Dosage: 500MG BID PO CHRONIC
     Route: 048
  17. OMEPRAZOLE [Concomitant]
  18. CARVEDILOL [Concomitant]
  19. ARTIFICIAL TEARS [Concomitant]

REACTIONS (7)
  - FALL [None]
  - BLOOD ELECTROLYTES ABNORMAL [None]
  - DEHYDRATION [None]
  - METABOLIC ACIDOSIS [None]
  - LACTIC ACIDOSIS [None]
  - HYPONATRAEMIA [None]
  - HYPOPERFUSION [None]
